FAERS Safety Report 22604495 (Version 1)
Quarter: 2023Q2

REPORT INFORMATION
  Report Type: Spontaneous
  Country: US (occurrence: US)
  Receive Date: 20230615
  Receipt Date: 20230615
  Transmission Date: 20230722
  Serious: No
  Sender: FDA-Public Use
  Company Number: US-BRISTOL-MYERS SQUIBB COMPANY-2023-084371

PATIENT
  Age: 86 Year
  Sex: Male
  Weight: 84.82 kg

DRUGS (1)
  1. ONUREG [Suspect]
     Active Substance: AZACITIDINE
     Indication: Myelodysplastic syndrome
     Dosage: 14D OF 28DAYS
     Route: 048
     Dates: start: 20230601

REACTIONS (2)
  - Vomiting [Recovering/Resolving]
  - Drug intolerance [Recovering/Resolving]
